FAERS Safety Report 16723640 (Version 1)
Quarter: 2019Q3

REPORT INFORMATION
  Report Type: Other
  Country: CA (occurrence: CA)
  Receive Date: 20190821
  Receipt Date: 20190821
  Transmission Date: 20191005
  Serious: Yes (Life-Threatening, Other)
  Sender: FDA-Public Use
  Company Number: CA-APOTEX-2019AP020419

PATIENT
  Age: 53 Year
  Sex: Female

DRUGS (1)
  1. APO-TOPIRAMATE [Suspect]
     Active Substance: TOPIRAMATE
     Indication: PRODUCT USED FOR UNKNOWN INDICATION
     Dosage: 25 MG, BID
     Route: 048

REACTIONS (3)
  - Toxicity to various agents [Recovered/Resolved]
  - Vein rupture [Recovered/Resolved]
  - Increased tendency to bruise [Recovered/Resolved]
